FAERS Safety Report 11455875 (Version 4)
Quarter: 2015Q4

REPORT INFORMATION
  Report Type: Other
  Country: US (occurrence: US)
  Receive Date: 20150903
  Receipt Date: 20151028
  Transmission Date: 20160304
  Serious: No
  Sender: FDA-Public Use
  Company Number: US-ACORDA-ACO_116279_2015

PATIENT
  Age: 35 Year
  Sex: Female

DRUGS (2)
  1. AMPYRA [Suspect]
     Active Substance: DALFAMPRIDINE
     Indication: MULTIPLE SCLEROSIS
     Dosage: 10 MG, BID
     Route: 048
  2. GILENYA [Suspect]
     Active Substance: FINGOLIMOD HYDROCHLORIDE
     Indication: PRODUCT USED FOR UNKNOWN INDICATION

REACTIONS (5)
  - Impaired healing [Unknown]
  - Melanocytic naevus [Unknown]
  - Birth mark [Unknown]
  - Infection susceptibility increased [Unknown]
  - Multiple sclerosis relapse [Recovering/Resolving]
